FAERS Safety Report 7205916-9 (Version None)
Quarter: 2011Q1

REPORT INFORMATION
  Report Type: 
  Country: None (occurrence: None)
  Receive Date: 20110102
  Receipt Date: 20101228
  Transmission Date: 20110831
  Serious: Yes (Death, Hospitalization)
  Sender: FDA-Public Use
  Company Number: US-BRISTOL-MYERS SQUIBB COMPANY-15381031

PATIENT
  Age: 82 Year
  Sex: Female

DRUGS (8)
  1. ERBITUX [Suspect]
     Indication: HEAD AND NECK CANCER
     Dates: start: 20101102
  2. MORPHINE SULFATE [Suspect]
     Dates: start: 20101108
  3. SULFADIAZINE [Suspect]
  4. HYDROCHLOROTHIAZIDE [Suspect]
  5. ASPIRIN [Suspect]
  6. ETIOVEN [Suspect]
  7. WARFARIN [Suspect]
  8. OMEPRAZOLE [Suspect]

REACTIONS (5)
  - SEPTIC SHOCK [None]
  - RESPIRATORY FAILURE [None]
  - COLITIS ISCHAEMIC [None]
  - HYPOTENSION [None]
  - ABDOMINAL PAIN UPPER [None]
